FAERS Safety Report 8622202 (Version 2)
Quarter: 2013Q1

REPORT INFORMATION
  Report Type: Report from Study
  Country: JP (occurrence: JP)
  Receive Date: 20120619
  Receipt Date: 20130103
  Transmission Date: 20140127
  Serious: Yes (Hospitalization)
  Sender: FDA-Public Use
  Company Number: JP-ROCHE-1076996

PATIENT
  Age: 77 Year
  Sex: Female

DRUGS (19)
  1. TOCILIZUMAB [Suspect]
     Indication: RHEUMATOID ARTHRITIS
     Route: 041
     Dates: start: 20090210, end: 20100309
  2. TOCILIZUMAB [Suspect]
     Route: 041
     Dates: start: 20100506
  3. AZOSEMIDE [Suspect]
     Indication: PRODUCT USED FOR UNKNOWN INDICATION
     Route: 048
  4. THYROID [Suspect]
     Indication: HYPOTHYROIDISM
     Route: 048
  5. RABEPRAZOLE SODIUM [Suspect]
     Indication: GASTROOESOPHAGEAL REFLUX DISEASE
     Route: 048
  6. ASPIRIN [Suspect]
     Indication: PROPHYLAXIS
     Route: 048
  7. CLOPIDOGREL BISULFATE [Suspect]
     Indication: PROPHYLAXIS
     Route: 048
  8. GLIMEPIRIDE [Suspect]
     Indication: DIABETES MELLITUS
     Route: 048
  9. ACARBOSE [Suspect]
     Indication: PRODUCT USED FOR UNKNOWN INDICATION
     Route: 048
  10. CELECOXIB [Suspect]
     Indication: PRODUCT USED FOR UNKNOWN INDICATION
     Route: 048
  11. REBAMIPIDE [Suspect]
     Indication: PRODUCT USED FOR UNKNOWN INDICATION
     Route: 048
  12. PREDNISOLONE [Suspect]
     Indication: RHEUMATOID ARTHRITIS
     Route: 048
     Dates: start: 2009, end: 20090406
  13. PREDNISOLONE [Suspect]
     Route: 048
     Dates: start: 20090407
  14. PREDNISOLONE [Suspect]
     Route: 048
  15. TRICHLORMETHIAZIDE [Concomitant]
     Indication: HYPERTENSION
     Route: 048
  16. NORVASC [Concomitant]
     Indication: ANGINA PECTORIS
     Route: 048
  17. PAMILCON [Concomitant]
     Indication: DIABETES MELLITUS
     Route: 048
  18. NABOAL [Concomitant]
     Indication: RHEUMATOID ARTHRITIS
     Route: 048
  19. INCREMIN (JAPAN) [Concomitant]
     Route: 048

REACTIONS (1)
  - Rheumatoid arthritis [Recovering/Resolving]
